FAERS Safety Report 4948093-7 (Version None)
Quarter: 2006Q1

REPORT INFORMATION
  Report Type: 
  Country: None (occurrence: None)
  Receive Date: 20060313
  Receipt Date: 20060228
  Transmission Date: 20060701
  Serious: Yes (Life-Threatening)
  Sender: FDA-Public Use
  Company Number: 06H-008-0305968-00

PATIENT
  Age: 43 Year
  Sex: Male

DRUGS (5)
  1. CALCIUM GLUCONATE [Suspect]
     Indication: ELECTROLYTE SUBSTITUTION THERAPY
     Dosage: 10 ML, INTRAVENOUS
     Route: 042
  2. POTASSIUM PHOSPHATES [Suspect]
     Indication: ELECTROLYTE SUBSTITUTION THERAPY
     Dosage: 20 MMOL/ 14 MMOL, INTRAVENOUS
     Route: 042
  3. FENTANYL [Concomitant]
  4. PROPOFOL [Concomitant]
  5. SUCCINYLCHOLINE CHLORIDE [Concomitant]

REACTIONS (17)
  - ACUTE RIGHT VENTRICULAR FAILURE [None]
  - ANAPHYLACTIC REACTION [None]
  - ATELECTASIS [None]
  - BRADYCARDIA [None]
  - BRONCHOSPASM [None]
  - CARDIAC FAILURE ACUTE [None]
  - CREPITATIONS [None]
  - ELECTROCARDIOGRAM T WAVE AMPLITUDE DECREASED [None]
  - HYPOXIA [None]
  - PRODUCTIVE COUGH [None]
  - PULMONARY HYPERTENSION [None]
  - PULMONARY OEDEMA [None]
  - RESPIRATORY DISTRESS [None]
  - SINUS TACHYCARDIA [None]
  - SPUTUM DISCOLOURED [None]
  - TACHYPNOEA [None]
  - WHEEZING [None]
